FAERS Safety Report 6735690-1 (Version None)
Quarter: 2010Q2

REPORT INFORMATION
  Report Type: 
  Country: None (occurrence: None)
  Receive Date: 20100521
  Receipt Date: 20100510
  Transmission Date: 20101027
  Serious: Yes (Life-Threatening, Hospitalization, Other)
  Sender: FDA-Public Use
  Company Number: DE-NOVOPROD-300740

PATIENT
  Sex: Male
  Weight: 85 kg

DRUGS (4)
  1. VICTOZA [Suspect]
     Indication: TYPE 2 DIABETES MELLITUS
     Dosage: UNK
     Route: 058
     Dates: start: 20091001, end: 20091006
  2. VICTOZA [Suspect]
     Dosage: UNK
     Route: 058
     Dates: start: 20091006, end: 20091029
  3. METFORMIN HCL [Concomitant]
     Dosage: UNK
     Route: 048
  4. METOPROLOL SUCCINATE [Concomitant]
     Dosage: UNK
     Route: 048

REACTIONS (7)
  - ABDOMINAL SYMPTOM [None]
  - ALANINE AMINOTRANSFERASE INCREASED [None]
  - ASTHENIA [None]
  - DECREASED APPETITE [None]
  - GAMMA-GLUTAMYLTRANSFERASE INCREASED [None]
  - SYNCOPE [None]
  - WEIGHT DECREASED [None]
